FAERS Safety Report 10550221 (Version 1)
Quarter: 2014Q4

REPORT INFORMATION
  Report Type: Spontaneous
  Country: CN (occurrence: CN)
  Receive Date: 20141028
  Receipt Date: 20141028
  Transmission Date: 20150529
  Serious: Yes (Hospitalization)
  Sender: FDA-Public Use
  Company Number: CN-MYLANLABS-2014M1008696

PATIENT

DRUGS (2)
  1. KETAMINE [Suspect]
     Active Substance: KETAMINE
     Indication: DRUG ABUSE
     Dosage: A REGULAR USE OF INTRA-NASAL STREET KETAMINE FOR THE PAST 6 YEARS
     Route: 045
  2. KETAMINE [Suspect]
     Active Substance: KETAMINE
     Indication: OFF LABEL USE

REACTIONS (3)
  - Renal injury [Recovering/Resolving]
  - Hepatic function abnormal [Recovered/Resolved]
  - Nephropathy [Recovering/Resolving]
